FAERS Safety Report 21342743 (Version 2)
Quarter: 2022Q3

REPORT INFORMATION
  Report Type: Spontaneous
  Country: JP (occurrence: JP)
  Receive Date: 20220916
  Receipt Date: 20220920
  Transmission Date: 20221027
  Serious: Yes (Hospitalization, Other)
  Sender: FDA-Public Use
  Company Number: JP-UCBJ-CD202207340UCBPHAPROD

PATIENT
  Age: 66 Year
  Sex: Male
  Weight: 38.1 kg

DRUGS (13)
  1. LEVETIRACETAM [Suspect]
     Active Substance: LEVETIRACETAM
     Indication: Seizure
     Dosage: 1 GRAM, 2X/DAY (BID)
     Route: 041
     Dates: start: 20220407, end: 20220427
  2. LEVETIRACETAM [Suspect]
     Active Substance: LEVETIRACETAM
     Indication: Off label use
  3. DIPRIVAN [Suspect]
     Active Substance: PROPOFOL
     Indication: Seizure
     Dosage: 500MG (THREE TO 6 TIMES )
     Route: 042
     Dates: start: 20220421, end: 20220423
  4. MIDAZOLAM [Suspect]
     Active Substance: MIDAZOLAM
     Indication: Seizure
     Dosage: FIVE AMPULES OF 10MG RECONSTITUTED BY 100ML OF PHYSIOLOGICAL SALINE, AND WAS ADMINISTERED ONCE OR TW
     Route: 042
     Dates: start: 20220423, end: 20220425
  5. FYCOMPA [Concomitant]
     Active Substance: PERAMPANEL
     Indication: Product used for unknown indication
     Dosage: UNK
     Route: 048
     Dates: start: 20220427, end: 20220701
  6. VALPROATE SODIUM [Concomitant]
     Active Substance: VALPROATE SODIUM
     Indication: Product used for unknown indication
     Dosage: 200 MILLIGRAM, 3X/DAY (TID)
     Route: 048
     Dates: start: 20220416, end: 20220701
  7. VALPROATE SODIUM [Concomitant]
     Active Substance: VALPROATE SODIUM
     Route: 048
     Dates: start: 20220416, end: 20220701
  8. FLORINEF ACETATE [Concomitant]
     Active Substance: FLUDROCORTISONE ACETATE
     Indication: Product used for unknown indication
     Route: 048
     Dates: start: 20220407, end: 20220701
  9. CEFTRIAXONE [Concomitant]
     Active Substance: CEFTRIAXONE
     Indication: Product used for unknown indication
     Dosage: UNK
     Dates: start: 20220407, end: 20220409
  10. CEFTRIAXONE [Concomitant]
     Active Substance: CEFTRIAXONE
     Dates: start: 20220419, end: 20220502
  11. CEFEPIME HYDROCHLORIDE [Concomitant]
     Active Substance: CEFEPIME HYDROCHLORIDE
     Indication: Product used for unknown indication
     Dosage: UNK
     Dates: start: 20220409
  12. NOREPINEPHRINE [Concomitant]
     Active Substance: NOREPINEPHRINE
     Indication: Product used for unknown indication
     Dosage: UNK
     Route: 042
     Dates: start: 20220421, end: 20220424
  13. FENTANYL [Concomitant]
     Active Substance: FENTANYL
     Indication: Product used for unknown indication

REACTIONS (5)
  - Hepatitis fulminant [Recovered/Resolved]
  - Drug-induced liver injury [Recovered/Resolved]
  - Status epilepticus [Unknown]
  - Blood pressure decreased [Unknown]
  - Off label use [Unknown]

NARRATIVE: CASE EVENT DATE: 20220407
